FAERS Safety Report 7542019-8 (Version None)
Quarter: 2011Q2

REPORT INFORMATION
  Report Type: 
  Country: None (occurrence: None)
  Receive Date: 20110613
  Receipt Date: 20110603
  Transmission Date: 20111010
  Serious: Yes (Hospitalization)
  Sender: FDA-Public Use
  Company Number: US-ASTRAZENECA-2011SE34779

PATIENT
  Age: 65 Year
  Sex: Female

DRUGS (5)
  1. CRESTOR [Suspect]
     Route: 048
     Dates: start: 20110603
  2. ZOLPIDEM TARTRATE [Concomitant]
  3. SYNTHROID [Concomitant]
  4. CRESTOR [Suspect]
     Route: 048
     Dates: end: 20110527
  5. AMBIEN [Concomitant]

REACTIONS (3)
  - BREAST LUMP REMOVAL [None]
  - BURNING SENSATION [None]
  - INAPPROPRIATE SCHEDULE OF DRUG ADMINISTRATION [None]
